FAERS Safety Report 10049471 (Version 2)
Quarter: 2014Q2

REPORT INFORMATION
  Report Type: Spontaneous
  Country: US (occurrence: US)
  Receive Date: 20140401
  Receipt Date: 20140606
  Transmission Date: 20141212
  Serious: Yes (Other)
  Sender: FDA-Public Use
  Company Number: US-TEVA-472248USA

PATIENT
  Age: 33 Year
  Sex: Female
  Weight: 103.97 kg

DRUGS (2)
  1. PARAGARD 380A [Suspect]
     Indication: CONTRACEPTION
     Route: 015
     Dates: start: 20140225
  2. DIAMOX [Concomitant]
     Indication: BENIGN INTRACRANIAL HYPERTENSION

REACTIONS (3)
  - CSF test abnormal [Not Recovered/Not Resolved]
  - Generalised oedema [Not Recovered/Not Resolved]
  - Headache [Recovered/Resolved]
